FAERS Safety Report 16878831 (Version 1)
Quarter: 2019Q4

REPORT INFORMATION
  Report Type: Spontaneous
  Country: CA (occurrence: CA)
  Receive Date: 20191002
  Receipt Date: 20191002
  Transmission Date: 20200122
  Serious: Yes (Other)
  Sender: FDA-Public Use
  Company Number: CA-CIPHER-2019-CA-002744

PATIENT
  Age: 41 Year
  Sex: Female

DRUGS (4)
  1. DULOXETINE. [Suspect]
     Active Substance: DULOXETINE
     Indication: ENDOMETRIOSIS
  2. ESOMEPRAZOLE MAGNESIUM TRIHYDRATE [Suspect]
     Active Substance: ESOMEPRAZOLE MAGNESIUM
     Indication: PRODUCT USED FOR UNKNOWN INDICATION
  3. TRAMADOL HYDROCHLORIDE. [Suspect]
     Active Substance: TRAMADOL HYDROCHLORIDE
     Indication: ENDOMETRIOSIS
  4. IBUPROFEN. [Suspect]
     Active Substance: IBUPROFEN
     Indication: ENDOMETRIOSIS

REACTIONS (2)
  - Cephalo-pelvic disproportion [Unknown]
  - Gestational diabetes [Unknown]
